FAERS Safety Report 7013131-7 (Version None)
Quarter: 2010Q3

REPORT INFORMATION
  Report Type: 
  Country: None (occurrence: None)
  Receive Date: 20100909
  Receipt Date: 20100520
  Transmission Date: 20110219
  Serious: Yes (Other)
  Sender: FDA-Public Use
  Company Number: 2010SP028171

PATIENT
  Sex: Female

DRUGS (1)
  1. SAPHRIS [Suspect]
     Indication: PRODUCT USED FOR UNKNOWN INDICATION
     Dosage: 5 MG; SL, 10 MG; SL, 5 MG;SL, PRESENT
     Route: 060

REACTIONS (4)
  - AGITATION [None]
  - AKATHISIA [None]
  - DYSGEUSIA [None]
  - SALIVARY HYPERSECRETION [None]
